FAERS Safety Report 17637991 (Version 1)
Quarter: 2020Q2

REPORT INFORMATION
  Report Type: Spontaneous
  Country: US (occurrence: US)
  Receive Date: 20200407
  Receipt Date: 20200407
  Transmission Date: 20200713
  Serious: Yes (Other)
  Sender: FDA-Public Use
  Company Number: None

PATIENT
  Age: 61 Year
  Sex: Female
  Weight: 59.4 kg

DRUGS (22)
  1. GENTLE IRON [Concomitant]
  2. PROBIOTICS [Concomitant]
     Active Substance: PROBIOTICS NOS
  3. XGEVA [Concomitant]
     Active Substance: DENOSUMAB
  4. ASPIRIN. [Concomitant]
     Active Substance: ASPIRIN
  5. VITAMIN D [Concomitant]
     Active Substance: VITAMIN D NOS
  6. LANTUS [Concomitant]
     Active Substance: INSULIN GLARGINE
  7. CALCIUM + D3 [Concomitant]
     Active Substance: CALCIUM\CHOLECALCIFEROL
  8. MAGNESIUM COMPLES [Concomitant]
  9. JOINT HEALTH [Concomitant]
  10. MUCINEX [Concomitant]
     Active Substance: GUAIFENESIN
  11. LISINOPRIL. [Concomitant]
     Active Substance: LISINOPRIL
  12. VITAMIN C [Concomitant]
     Active Substance: ASCORBIC ACID
  13. CAPECITABINE. [Suspect]
     Active Substance: CAPECITABINE
     Indication: BREAST CANCER FEMALE
     Route: 048
     Dates: start: 20200122, end: 20200407
  14. DEMULCENT LIQUID [Concomitant]
  15. MEGACO-B [Concomitant]
  16. NOVOLOG [Concomitant]
     Active Substance: INSULIN ASPART
  17. FASLODEX [Concomitant]
     Active Substance: FULVESTRANT
  18. PRENATAL VITAMINS [Concomitant]
     Active Substance: VITAMINS
  19. LIQUID VITAMIN D [Concomitant]
  20. OSTEOVERSE [Concomitant]
  21. CURCUMIN [Concomitant]
     Active Substance: CURCUMIN
  22. HYDROCODONE-APAP [Concomitant]
     Active Substance: ACETAMINOPHEN\HYDROCODONE

REACTIONS (1)
  - Disease progression [None]

NARRATIVE: CASE EVENT DATE: 20200407
